FAERS Safety Report 20263662 (Version 9)
Quarter: 2022Q4

REPORT INFORMATION
  Report Type: Spontaneous
  Country: IN (occurrence: IN)
  Receive Date: 20211231
  Receipt Date: 20221207
  Transmission Date: 20230113
  Serious: Yes (Other)
  Sender: FDA-Public Use
  Company Number: IN-PFIZER INC-2020248937

PATIENT
  Age: 60 Year
  Sex: Female

DRUGS (12)
  1. PALBOCICLIB [Suspect]
     Active Substance: PALBOCICLIB
     Indication: Breast cancer metastatic
     Dosage: 125 MG, CYCLIC (21 DAYS THEN 7 DAYS GAP)
     Route: 048
     Dates: start: 20190507
  2. PALBOCICLIB [Suspect]
     Active Substance: PALBOCICLIB
     Dosage: 100 MG, CYCLIC (D1-D21)
     Route: 048
     Dates: start: 20210815
  3. PALBOCICLIB [Suspect]
     Active Substance: PALBOCICLIB
     Dosage: 100 MG, CYCLIC (D1-D21)
     Route: 048
     Dates: start: 20210926, end: 202202
  4. PALBOCICLIB [Suspect]
     Active Substance: PALBOCICLIB
     Dosage: 125 MG
     Dates: end: 202211
  5. LETROZOLE [Concomitant]
     Active Substance: LETROZOLE
     Dosage: 2.5 MG, 1X/DAY
     Route: 048
  6. SHELCAL [CALCIUM CARBONATE;COLECALCIFEROL] [Concomitant]
     Dosage: 500 MG, 1X/DAY
  7. UPRISE D3 [Concomitant]
     Dosage: 60000 - ONCE A MONTH
  8. EVION LC [Concomitant]
     Dosage: 1 CAP ONCE A WEEK
  9. ZOLEDRONIC ACID [Concomitant]
     Active Substance: ZOLEDRONIC ACID
     Dosage: 4MG IN 150ML NS OVER 30 MINS ONCE IN 3 MONTHS
  10. ZOLEDRONIC ACID [Concomitant]
     Active Substance: ZOLEDRONIC ACID
     Dosage: 4MG IN 100ML NS ONCE EVERY 2MONTHS
  11. PANTOPRAZOLE SODIUM [Concomitant]
     Active Substance: PANTOPRAZOLE SODIUM
     Dosage: 40 MG, 2X/DAY
  12. FULVESTRANT [Concomitant]
     Active Substance: FULVESTRANT
     Dosage: UNK

REACTIONS (12)
  - Blood urea abnormal [Unknown]
  - Patella fracture [Unknown]
  - Knee operation [Unknown]
  - Neoplasm progression [Unknown]
  - Neutrophil count decreased [Recovering/Resolving]
  - Dyspepsia [Unknown]
  - Fatigue [Unknown]
  - Asthenia [Unknown]
  - Pruritus [Unknown]
  - Osteoporosis [Unknown]
  - Haemoglobin decreased [Unknown]
  - White blood cell count decreased [Unknown]

NARRATIVE: CASE EVENT DATE: 20200622
